FAERS Safety Report 10590309 (Version 1)
Quarter: 2014Q4

REPORT INFORMATION
  Report Type: Spontaneous
  Country: PT (occurrence: PT)
  Receive Date: 20141118
  Receipt Date: 20141118
  Transmission Date: 20150529
  Serious: Yes (Death)
  Sender: FDA-Public Use
  Company Number: PT-GILEAD-2014-0122717

PATIENT
  Age: 42 Year
  Sex: Male

DRUGS (10)
  1. VISTIDE [Suspect]
     Active Substance: CIDOFOVIR
     Indication: SEPTIC SHOCK
     Route: 065
  2. ATOVAQUONE. [Concomitant]
     Active Substance: ATOVAQUONE
  3. PIPERACILLIN AND TAZOBACTAM [Concomitant]
     Active Substance: PIPERACILLIN SODIUM\TAZOBACTAM SODIUM
  4. ACYCLOVIR                          /00587301/ [Concomitant]
     Active Substance: ACYCLOVIR
  5. POSACONAZOLE [Concomitant]
     Active Substance: POSACONAZOLE
  6. CYCLOSPORINE. [Concomitant]
     Active Substance: CYCLOSPORINE
  7. DAPTOMICINA [Concomitant]
  8. VANCOMYCIN [Concomitant]
     Active Substance: VANCOMYCIN
  9. MEROPENEM. [Concomitant]
     Active Substance: MEROPENEM
  10. CASPOFUNGIN [Concomitant]
     Active Substance: CASPOFUNGIN

REACTIONS (2)
  - Drug ineffective [Fatal]
  - Off label use [Fatal]
